FAERS Safety Report 9351435 (Version 1)
Quarter: 2013Q2

REPORT INFORMATION
  Report Type: Spontaneous
  Country: FR (occurrence: FR)
  Receive Date: 20130617
  Receipt Date: 20130617
  Transmission Date: 20140414
  Serious: Yes (Other)
  Sender: FDA-Public Use
  Company Number: FR-TEVA-412831ISR

PATIENT
  Sex: Female

DRUGS (1)
  1. FUROSEMIDE TEVA [Suspect]
     Indication: CARDIAC FAILURE

REACTIONS (7)
  - Myocardial infarction [Unknown]
  - Oedema [Unknown]
  - Local swelling [Unknown]
  - Weight increased [Unknown]
  - Dyspnoea [Unknown]
  - Micturition frequency decreased [Unknown]
  - Somnolence [Unknown]
